FAERS Safety Report 16461679 (Version 24)
Quarter: 2021Q1

REPORT INFORMATION
  Report Type: Spontaneous
  Country: CA (occurrence: CA)
  Receive Date: 20190621
  Receipt Date: 20210323
  Transmission Date: 20210419
  Serious: Yes (Hospitalization, Other)
  Sender: FDA-Public Use
  Company Number: CA-CELLTRION INC.-2019CA020018

PATIENT

DRUGS (40)
  1. INFLECTRA [Suspect]
     Active Substance: INFLIXIMAB-DYYB
     Dosage: 5 MG/KG, (EVERY 4 WEEKS)
     Route: 042
     Dates: start: 20191128
  2. CYMBALTA [Concomitant]
     Active Substance: DULOXETINE HYDROCHLORIDE
     Dosage: 30 MG, 1X/DAY [FOR 2 WEEKS THEN TAKE 2 TABLETS QD]
     Route: 048
  3. INFLECTRA [Suspect]
     Active Substance: INFLIXIMAB-DYYB
     Dosage: 5 MG/KG (EVERY 4 WEEKS)
     Route: 042
     Dates: start: 20200325
  4. INFLECTRA [Suspect]
     Active Substance: INFLIXIMAB-DYYB
     Dosage: 5 MG/KG (EVERY 4 WEEKS)
     Route: 042
     Dates: start: 20200522
  5. INFLECTRA [Suspect]
     Active Substance: INFLIXIMAB-DYYB
     Dosage: 5 MG/KG (EVERY 4 WEEKS)
     Route: 042
     Dates: start: 20200629
  6. INFLECTRA [Suspect]
     Active Substance: INFLIXIMAB-DYYB
     Dosage: 260 MG, (EVERY 4 WEEKS)
     Route: 042
     Dates: start: 20210115
  7. FLOVENT [Concomitant]
     Active Substance: FLUTICASONE PROPIONATE
     Dosage: UNK, AS NEEDED
     Route: 055
  8. INFLECTRA [Suspect]
     Active Substance: INFLIXIMAB-DYYB
     Dosage: 260 MG, (EVERY 4 WEEKS)
     Route: 042
     Dates: start: 20210212
  9. INFLECTRA [Suspect]
     Active Substance: INFLIXIMAB-DYYB
     Dosage: 260 MG, (EVERY 4 WEEKS)
     Route: 042
     Dates: start: 20210212
  10. HYDROCORTISONE. [Concomitant]
     Active Substance: HYDROCORTISONE
     Dosage: 100 MG
     Dates: start: 20201120, end: 20201120
  11. DIPHENHYDRAMINE. [Concomitant]
     Active Substance: DIPHENHYDRAMINE
     Indication: PREMEDICATION
     Dosage: 50 MG
     Dates: start: 20200727, end: 20200727
  12. DIPHENHYDRAMINE. [Concomitant]
     Active Substance: DIPHENHYDRAMINE
     Dosage: 50 MG
     Route: 048
     Dates: start: 20201019, end: 20201019
  13. DIPHENHYDRAMINE. [Concomitant]
     Active Substance: DIPHENHYDRAMINE
     Dosage: 50 MG
     Dates: start: 20201120, end: 20201120
  14. INFLECTRA [Suspect]
     Active Substance: INFLIXIMAB-DYYB
     Dosage: 5 MG/KG AT 0, 2, 6, THEN EVERY 8 WEEKS
     Route: 042
     Dates: start: 20190418
  15. INFLECTRA [Suspect]
     Active Substance: INFLIXIMAB-DYYB
     Dosage: 5 MG/KG (EVERY 4 WEEKS)
     Route: 042
     Dates: start: 20191230
  16. INFLECTRA [Suspect]
     Active Substance: INFLIXIMAB-DYYB
     Dosage: 5 MG/KG (EVERY 4 WEEKS)
     Route: 042
     Dates: start: 20200301
  17. INFLECTRA [Suspect]
     Active Substance: INFLIXIMAB-DYYB
     Dosage: 260 MG, (EVERY 4 WEEKS)
     Route: 042
     Dates: start: 20201019
  18. INFLECTRA [Suspect]
     Active Substance: INFLIXIMAB-DYYB
     Dosage: 260 MG, (EVERY 4 WEEKS)
     Route: 042
     Dates: start: 20210312
  19. HYDROCORTISONE. [Concomitant]
     Active Substance: HYDROCORTISONE
     Dosage: 100 MG
     Route: 042
     Dates: start: 20201019, end: 20201019
  20. DIPHENHYDRAMINE. [Concomitant]
     Active Substance: DIPHENHYDRAMINE
     Dosage: 50 MG
     Route: 048
     Dates: start: 20210212, end: 20210212
  21. INFLECTRA [Suspect]
     Active Substance: INFLIXIMAB-DYYB
     Dosage: 5 MG/KG, (EVERY 4 WEEKS)
     Route: 042
     Dates: start: 20190809, end: 20200629
  22. INFLECTRA [Suspect]
     Active Substance: INFLIXIMAB-DYYB
     Dosage: 5 MG/KG, AT 0, 2, 6, THEN EVERY 8 WEEKS
     Route: 042
     Dates: start: 20190809
  23. INFLECTRA [Suspect]
     Active Substance: INFLIXIMAB-DYYB
     Dosage: 5 MG/KG (EVERY 4 WEEKS)
     Route: 042
     Dates: start: 20200424
  24. INFLECTRA [Suspect]
     Active Substance: INFLIXIMAB-DYYB
     Dosage: 260 MG, (EVERY 4 WEEKS)
     Route: 042
     Dates: start: 20200921
  25. HYDROCORTISONE. [Concomitant]
     Active Substance: HYDROCORTISONE
     Dosage: 100 MG
     Route: 042
     Dates: start: 20210212, end: 20210212
  26. INFLECTRA [Suspect]
     Active Substance: INFLIXIMAB-DYYB
     Indication: CROHN^S DISEASE
     Dosage: 225 MG, AT 0, 2, 6, THEN EVERY 8 WEEKS
     Route: 042
     Dates: start: 20190308, end: 20190308
  27. INFLECTRA [Suspect]
     Active Substance: INFLIXIMAB-DYYB
     Dosage: 5 MG/KG AT 0, 2, 6, THEN EVERY 8 WEEKS
     Route: 042
     Dates: start: 20190322, end: 20190614
  28. INFLECTRA [Suspect]
     Active Substance: INFLIXIMAB-DYYB
     Dosage: 5 MG/KG, (EVERY 4 WEEKS)
     Dates: start: 20200131
  29. INFLECTRA [Suspect]
     Active Substance: INFLIXIMAB-DYYB
     Dosage: 260 MG, (EVERY 4 WEEKS)
     Route: 042
     Dates: start: 20200727
  30. INFLECTRA [Suspect]
     Active Substance: INFLIXIMAB-DYYB
     Dosage: 260 MG, (EVERY 4 WEEKS)
     Route: 042
     Dates: start: 20201120
  31. SALBUTAMOL [Concomitant]
     Active Substance: ALBUTEROL
     Dosage: UNK, AS NEEDED
     Route: 055
  32. CYMBALTA [Concomitant]
     Active Substance: DULOXETINE HYDROCHLORIDE
     Dosage: 60 MG, DAILY(TWO TABLETS 30MG
     Route: 048
  33. HYDROCORTISONE. [Concomitant]
     Active Substance: HYDROCORTISONE
     Indication: PREMEDICATION
     Dosage: 100 MG
     Dates: start: 20200727, end: 20200727
  34. INFLECTRA [Suspect]
     Active Substance: INFLIXIMAB-DYYB
     Dosage: 5 MG/KG, AT 0, 2, 6, THEN EVERY 8 WEEKS
     Route: 042
     Dates: start: 20191101
  35. INFLECTRA [Suspect]
     Active Substance: INFLIXIMAB-DYYB
     Dosage: 260 MG, (EVERY 4 WEEKS)
     Route: 042
     Dates: start: 20201214
  36. CYMBALTA [Concomitant]
     Active Substance: DULOXETINE HYDROCHLORIDE
     Dosage: 30 MG, QD FOR 2 WEEKS
     Route: 048
  37. INFLECTRA [Suspect]
     Active Substance: INFLIXIMAB-DYYB
     Dosage: 5 MG/KG, AT 0, 2, 6, THEN EVERY 8 WEEKS
     Route: 042
     Dates: start: 20190614
  38. INFLECTRA [Suspect]
     Active Substance: INFLIXIMAB-DYYB
     Dosage: 5 MG/KG, AT 0, 2, 6, THEN EVERY 8 WEEKS
     Route: 042
     Dates: start: 20190909
  39. INFLECTRA [Suspect]
     Active Substance: INFLIXIMAB-DYYB
     Dosage: 5 MG/KG, AT 0, 2, 6, THEN EVERY 8 WEEKS
     Route: 042
     Dates: start: 20191004
  40. PREDNISONE. [Concomitant]
     Active Substance: PREDNISONE
     Dosage: 400 MG, FOR ONE WEEK (THEN TAPER 5 MG UNTIL FINISHED)
     Dates: start: 201901

REACTIONS (23)
  - Feeling cold [Recovered/Resolved]
  - Haemolysis [Unknown]
  - Malaise [Unknown]
  - Fistula [Recovered/Resolved]
  - Loss of consciousness [Unknown]
  - Dehydration [Unknown]
  - Pyrexia [Unknown]
  - Pain [Unknown]
  - Blood pressure diastolic decreased [Unknown]
  - Anal abscess [Recovered/Resolved]
  - Mouth ulceration [Unknown]
  - Headache [Recovered/Resolved]
  - Chills [Unknown]
  - Condition aggravated [Recovering/Resolving]
  - Fear of injection [Unknown]
  - Heart rate increased [Unknown]
  - Off label use [Unknown]
  - Incorrect dose administered [Unknown]
  - Arthralgia [Unknown]
  - Drug level below therapeutic [Unknown]
  - Tremor [Unknown]
  - Decreased appetite [Unknown]
  - Cardiovascular disorder [Unknown]

NARRATIVE: CASE EVENT DATE: 2019
